FAERS Safety Report 22654392 (Version 1)
Quarter: 2023Q2

REPORT INFORMATION
  Report Type: Spontaneous
  Country: US (occurrence: None)
  Receive Date: 20230628
  Receipt Date: 20230628
  Transmission Date: 20230722
  Serious: Yes (Disabling, Other)
  Sender: FDA-Public Use
  Company Number: None

PATIENT
  Age: 64 Year
  Sex: 0
  Weight: 78.75 kg

DRUGS (3)
  1. LEVOFLOXACIN [Suspect]
     Active Substance: LEVOFLOXACIN
     Indication: Sinusitis
     Dosage: OTHER QUANTITY : 1 CAPSULE(S);?FREQUENCY : DAILY;?
     Route: 048
     Dates: start: 20230606, end: 20230609
  2. ALBUTEROL [Concomitant]
     Active Substance: ALBUTEROL
  3. FLOVENT [Concomitant]
     Active Substance: FLUTICASONE PROPIONATE

REACTIONS (9)
  - Muscular weakness [None]
  - Gait disturbance [None]
  - Pain in extremity [None]
  - Pain in extremity [None]
  - Muscle strain [None]
  - Paraesthesia [None]
  - Burning sensation [None]
  - Tendon pain [None]
  - Arthralgia [None]

NARRATIVE: CASE EVENT DATE: 20230606
